FAERS Safety Report 20709584 (Version 1)
Quarter: 2022Q2

REPORT INFORMATION
  Report Type: Spontaneous
  Country: US (occurrence: None)
  Receive Date: 20220414
  Receipt Date: 20220414
  Transmission Date: 20220720
  Serious: Yes (Hospitalization)
  Sender: FDA-Public Use
  Company Number: None

PATIENT
  Age: 56 Year
  Sex: Male
  Weight: 106.2 kg

DRUGS (4)
  1. FLUOROURACIL [Suspect]
     Active Substance: FLUOROURACIL
     Dates: end: 20220316
  2. IRINOTECAN [Suspect]
     Active Substance: IRINOTECAN
     Dates: end: 20220330
  3. LEUCOVORIN CALCIUM [Suspect]
     Active Substance: LEUCOVORIN CALCIUM
     Dates: end: 20220330
  4. ELOXATIN [Suspect]
     Active Substance: OXALIPLATIN
     Dates: end: 20220330

REACTIONS (4)
  - Pyrexia [None]
  - Chills [None]
  - Lethargy [None]
  - Vena cava thrombosis [None]

NARRATIVE: CASE EVENT DATE: 20220408
